FAERS Safety Report 10865037 (Version 1)
Quarter: 2015Q1

REPORT INFORMATION
  Report Type: Report from Study
  Country: US (occurrence: US)
  Receive Date: 20150224
  Receipt Date: 20150224
  Transmission Date: 20150721
  Serious: No
  Sender: FDA-Public Use
  Company Number: US-MYLANLABS-2014S1006536

PATIENT
  Age: 16 Year
  Sex: Male
  Weight: 103.42 kg

DRUGS (3)
  1. AMNESTEEM [Suspect]
     Active Substance: ISOTRETINOIN
     Dosage: 40 MG,QD
     Route: 048
     Dates: start: 20131115, end: 201312
  2. AMNESTEEM [Suspect]
     Active Substance: ISOTRETINOIN
     Indication: ACNE
  3. AMNESTEEM [Suspect]
     Active Substance: ISOTRETINOIN
     Dosage: 40 MG,BID
     Route: 048
     Dates: start: 201312, end: 20140314

REACTIONS (4)
  - Mood altered [Recovering/Resolving]
  - Emotional disorder [Recovering/Resolving]
  - Abnormal behaviour [Recovering/Resolving]
  - Acne [Not Recovered/Not Resolved]

NARRATIVE: CASE EVENT DATE: 201402
